FAERS Safety Report 4885574-9 (Version None)
Quarter: 2006Q1

REPORT INFORMATION
  Report Type: 
  Country: None (occurrence: None)
  Receive Date: 20060119
  Receipt Date: 20051208
  Transmission Date: 20060701
  Serious: Yes (Death, Hospitalization, Disabling)
  Sender: FDA-Public Use
  Company Number: US-MERCK-0512USA01604

PATIENT
  Age: 48 Year
  Sex: Female
  Weight: 52 kg

DRUGS (1)
  1. VIOXX [Suspect]
     Indication: PAIN
     Route: 048
     Dates: end: 20010704

REACTIONS (3)
  - HYSTERECTOMY [None]
  - MYOCARDIAL INFARCTION [None]
  - UTERINE DISORDER [None]
